FAERS Safety Report 8789085 (Version 2)
Quarter: 2012Q4

REPORT INFORMATION
  Report Type: 
  Country: JP (occurrence: JP)
  Receive Date: 20120917
  Receipt Date: 20120924
  Transmission Date: 20130627
  Serious: Yes (Death, Hospitalization)
  Sender: FDA-Public Use
  Company Number: JP-009507513-1209JPN003129

PATIENT
  Age: 41 Year
  Sex: Female

DRUGS (6)
  1. AMITRIPTYLINE HYDROCHLORIDE [Suspect]
     Route: 048
  2. DEPAS [Suspect]
     Route: 048
  3. LUVOX [Suspect]
     Route: 048
  4. SEROQUEL [Suspect]
     Route: 048
  5. NAUZELIN [Suspect]
     Route: 048
  6. ABILIFY [Suspect]
     Route: 048

REACTIONS (1)
  - Intentional overdose [Fatal]
